FAERS Safety Report 11698748 (Version 2)
Quarter: 2015Q4

REPORT INFORMATION
  Report Type: Spontaneous
  Country: BR (occurrence: BR)
  Receive Date: 20151104
  Receipt Date: 20151113
  Transmission Date: 20160304
  Serious: Yes (Other)
  Sender: FDA-Public Use
  Company Number: PHHY2015BR143443

PATIENT
  Sex: Female
  Weight: 60 kg

DRUGS (3)
  1. LIPITOR [Concomitant]
     Active Substance: ATORVASTATIN CALCIUM
     Indication: BLOOD CHOLESTEROL ABNORMAL
     Dosage: 1 DF, QD AT NIGHT
     Route: 048
  2. DIOVAN HCT [Suspect]
     Active Substance: HYDROCHLOROTHIAZIDE\VALSARTAN
     Indication: HYPERTENSION
     Dosage: 1 DF (320/12.5 MG), QD
     Route: 048
  3. DIOVAN [Suspect]
     Active Substance: VALSARTAN
     Indication: HYPERTENSION
     Dosage: UNK
     Route: 065

REACTIONS (11)
  - Diabetes mellitus [Unknown]
  - Suspected counterfeit product [Unknown]
  - Arthralgia [Unknown]
  - Fluid retention [Unknown]
  - Hepatic steatosis [Unknown]
  - Intervertebral disc protrusion [Unknown]
  - Wrong drug administered [Unknown]
  - Erythema [Recovered/Resolved]
  - Visual impairment [Unknown]
  - Arthritis [Unknown]
  - Osteoarthritis [Unknown]
